FAERS Safety Report 24229173 (Version 1)
Quarter: 2024Q3

REPORT INFORMATION
  Report Type: Spontaneous
  Country: US (occurrence: None)
  Receive Date: 20240819
  Receipt Date: 20240819
  Transmission Date: 20241017
  Serious: Yes (Other)
  Sender: Public
  Company Number: None

PATIENT
  Age: 65 Year
  Sex: Female
  Weight: 108 kg

DRUGS (1)
  1. THERATEARS [Suspect]
     Active Substance: CARBOXYMETHYLCELLULOSE SODIUM
     Indication: Dry eye
     Route: 047
     Dates: start: 20240814, end: 20240814

REACTIONS (5)
  - Eye irritation [None]
  - Ocular hyperaemia [None]
  - Eye swelling [None]
  - Eye pruritus [None]
  - Eye pain [None]

NARRATIVE: CASE EVENT DATE: 20240814
